FAERS Safety Report 10190201 (Version 4)
Quarter: 2015Q4

REPORT INFORMATION
  Report Type: Spontaneous
  Country: US (occurrence: US)
  Receive Date: 20140522
  Receipt Date: 20151029
  Transmission Date: 20160304
  Serious: Yes (Hospitalization, Disabling, Other)
  Sender: FDA-Public Use
  Company Number: US-009507513-1405USA011478

PATIENT
  Sex: Female
  Weight: 54.88 kg

DRUGS (3)
  1. FOSAMAX [Suspect]
     Active Substance: ALENDRONATE SODIUM
     Indication: OSTEOPENIA
     Dosage: 70 MG, QW
     Route: 048
     Dates: end: 2008
  2. FOSAMAX [Suspect]
     Active Substance: ALENDRONATE SODIUM
     Indication: OSTEOPOROSIS
     Dosage: UNK
     Route: 048
     Dates: start: 200002
  3. ALENDRONATE SODIUM. [Suspect]
     Active Substance: ALENDRONATE SODIUM
     Indication: OSTEOPOROSIS
     Dosage: 70 MG, QW
     Route: 048
     Dates: start: 2008, end: 20110816

REACTIONS (13)
  - Gastrooesophageal reflux disease [Unknown]
  - Fracture [Unknown]
  - Pupils unequal [Unknown]
  - Cystitis [Unknown]
  - Fibrocystic breast disease [Unknown]
  - Stress urinary incontinence [Unknown]
  - Surgery [Unknown]
  - Femur fracture [Recovering/Resolving]
  - Fracture reduction [Unknown]
  - Fractured sacrum [Unknown]
  - Rectal haemorrhage [Unknown]
  - Facial bones fracture [Unknown]
  - Osteoarthritis [Unknown]

NARRATIVE: CASE EVENT DATE: 2009
